FAERS Safety Report 14774172 (Version 1)
Quarter: 2018Q2

REPORT INFORMATION
  Report Type: Spontaneous
  Country: SE (occurrence: SE)
  Receive Date: 20180418
  Receipt Date: 20180418
  Transmission Date: 20180711
  Serious: Yes (Other)
  Sender: FDA-Public Use
  Company Number: SE-ARBOR PHARMACEUTICALS, LLC-SE-2018ARB000469

PATIENT
  Age: 54 Year
  Sex: Female
  Weight: 68 kg

DRUGS (2)
  1. IVERMECTIN. [Suspect]
     Active Substance: IVERMECTIN
     Dosage: 2 PILLS, DAY 7
  2. IVERMECTIN. [Suspect]
     Active Substance: IVERMECTIN
     Indication: ACARODERMATITIS
     Dosage: 2 PILLS, DAY 0

REACTIONS (6)
  - Confusional state [Unknown]
  - Nausea [Unknown]
  - Headache [Unknown]
  - Seizure [Unknown]
  - Swelling [Unknown]
  - Heart rate increased [Unknown]
